FAERS Safety Report 5530031-X (Version None)
Quarter: 2007Q4

REPORT INFORMATION
  Report Type: 
  Country: None (occurrence: None)
  Receive Date: 20071127
  Receipt Date: 20071115
  Transmission Date: 20080405
  Serious: Yes (Hospitalization)
  Sender: FDA-Public Use
  Company Number: 2007BI024312

PATIENT
  Age: 57 Year
  Sex: Male

DRUGS (1)
  1. AVONEX [Suspect]
     Indication: MULTIPLE SCLEROSIS
     Dosage: IM
     Route: 030
     Dates: start: 20020101

REACTIONS (1)
  - KNEE ARTHROPLASTY [None]
